FAERS Safety Report 23726783 (Version 1)
Quarter: 2024Q2

REPORT INFORMATION
  Report Type: Report from Study
  Country: ES (occurrence: ES)
  Receive Date: 20240410
  Receipt Date: 20240410
  Transmission Date: 20240716
  Serious: Yes (Life-Threatening, Hospitalization, Other)
  Sender: FDA-Public Use
  Company Number: ES-CELGENE-ESP-2015062130

PATIENT
  Age: 62 Year
  Sex: Female

DRUGS (8)
  1. POMALIDOMIDE [Suspect]
     Active Substance: POMALIDOMIDE
     Indication: Plasma cell myeloma
     Route: 048
     Dates: start: 20150522
  2. POMALIDOMIDE [Suspect]
     Active Substance: POMALIDOMIDE
     Route: 048
     Dates: start: 20150424, end: 20150514
  3. DEXAMETHASONE [Suspect]
     Active Substance: DEXAMETHASONE
     Indication: Plasma cell myeloma
     Dosage: FREQUENCY TEXT: NOT PROVIDED
     Dates: start: 20150522
  4. DEXAMETHASONE [Suspect]
     Active Substance: DEXAMETHASONE
     Dosage: FREQUENCY TEXT: NOT PROVIDED
     Dates: start: 20150602
  5. DEXAMETHASONE [Suspect]
     Active Substance: DEXAMETHASONE
     Dosage: FREQUENCY TEXT: NOT PROVIDED
     Dates: start: 20150424
  6. HIBOR [Concomitant]
     Indication: Thrombosis
     Dosage: FREQUENCY TEXT: NOT PROVIDED
     Dates: start: 20140408
  7. OMEPRAZOLE [Concomitant]
     Active Substance: OMEPRAZOLE
     Indication: Dyspepsia
     Dosage: FREQUENCY TEXT: NOT PROVIDED
     Dates: start: 20140804
  8. FENTANYL [Concomitant]
     Active Substance: FENTANYL\FENTANYL CITRATE
     Indication: Pain
     Dosage: FREQUENCY TEXT: NOT PROVIDED
     Dates: start: 20140421

REACTIONS (2)
  - Herpes simplex meningitis [Recovered/Resolved with Sequelae]
  - Malaise [Recovered/Resolved]

NARRATIVE: CASE EVENT DATE: 20150508
